FAERS Safety Report 5254564-9 (Version None)
Quarter: 2007Q1

REPORT INFORMATION
  Report Type: 
  Country: None (occurrence: None)
  Receive Date: 20070302
  Receipt Date: 20070222
  Transmission Date: 20070707
  Serious: Yes (Hospitalization)
  Sender: FDA-Public Use
  Company Number: US-MERCK-0702USA04102

PATIENT
  Sex: Female

DRUGS (4)
  1. EMEND [Suspect]
     Route: 048
  2. PHENERGAN (PROMETHAZINE HYDROCHLORIDE) [Concomitant]
     Route: 065
  3. HALDOL [Concomitant]
     Route: 065
  4. ZOFRAN [Concomitant]
     Route: 065

REACTIONS (1)
  - HALLUCINATION [None]
